FAERS Safety Report 4963714-0 (Version None)
Quarter: 2006Q1

REPORT INFORMATION
  Report Type: 
  Country: None (occurrence: None)
  Receive Date: 20060330
  Receipt Date: 20060323
  Transmission Date: 20060701
  Serious: Yes (Life-Threatening)
  Sender: FDA-Public Use
  Company Number: 223117

PATIENT
  Age: 13 Year
  Sex: Female
  Weight: 51.2 kg

DRUGS (9)
  1. XOLAIR [Suspect]
     Indication: ASTHMA
     Dosage: 375 MG, SUBCUTANEOUS
     Route: 058
     Dates: start: 20060315, end: 20060315
  2. PREDNISONE 50MG TAB [Concomitant]
  3. ADVAIR DISKUS 100/50 [Concomitant]
  4. SINGULAIR [Concomitant]
  5. LORATADINE [Concomitant]
  6. NASACORT AQ (TRIAMCINOLONE ACETONIDE) [Concomitant]
  7. NEXIUM [Concomitant]
  8. ATENOLOL [Concomitant]
  9. QVAR 40 [Concomitant]

REACTIONS (2)
  - ANAPHYLACTIC REACTION [None]
  - INJECTION SITE REACTION [None]
